FAERS Safety Report 7307537-6 (Version None)
Quarter: 2011Q1

REPORT INFORMATION
  Report Type: 
  Country: None (occurrence: None)
  Receive Date: 20110223
  Receipt Date: 20110214
  Transmission Date: 20110831
  Serious: Yes (Other)
  Sender: FDA-Public Use
  Company Number: CA-JNJFOC-20110205244

PATIENT

DRUGS (10)
  1. RAMIPRIL [Concomitant]
  2. REMICADE [Suspect]
     Indication: RHEUMATOID ARTHRITIS
     Route: 042
  3. REMICADE [Suspect]
     Route: 042
  4. DICLOFENAC [Concomitant]
  5. PREMARIN [Concomitant]
  6. METFORMIN [Concomitant]
  7. VENTOLIN [Concomitant]
  8. HYDROCHLOROTHIAZIDE [Concomitant]
  9. MORPHINE [Concomitant]
  10. ACTONEL [Concomitant]

REACTIONS (8)
  - NASOPHARYNGITIS [None]
  - PAIN [None]
  - INFUSION RELATED REACTION [None]
  - DYSPHAGIA [None]
  - SINUSITIS [None]
  - STRESS [None]
  - NAUSEA [None]
  - EAR INFECTION [None]
